FAERS Safety Report 5796582-8 (Version None)
Quarter: 2008Q3

REPORT INFORMATION
  Report Type: 
  Country: None (occurrence: None)
  Receive Date: 20080701
  Receipt Date: 20080623
  Transmission Date: 20090109
  Serious: Yes (Hospitalization, Other)
  Sender: FDA-Public Use
  Company Number: US-JNJFOC-20080501313

PATIENT
  Sex: Female
  Weight: 84.37 kg

DRUGS (3)
  1. REMICADE [Suspect]
     Route: 042
  2. REMICADE [Suspect]
     Indication: CROHN'S DISEASE
     Route: 042
  3. AZULFIDINE EN-TABS [Concomitant]
     Indication: CROHN'S DISEASE

REACTIONS (2)
  - ANTIPHOSPHOLIPID ANTIBODIES [None]
  - INTRACRANIAL VENOUS SINUS THROMBOSIS [None]
